FAERS Safety Report 4687493-X (Version None)
Quarter: 2005Q2

REPORT INFORMATION
  Report Type: 
  Country: None (occurrence: None)
  Receive Date: 20050610
  Receipt Date: 20050601
  Transmission Date: 20051028
  Serious: Yes (Hospitalization)
  Sender: FDA-Public Use
  Company Number: PHBS2005TR07855

PATIENT
  Sex: Female

DRUGS (1)
  1. ZELMAC [Suspect]
     Indication: IRRITABLE BOWEL SYNDROME
     Dosage: 6 MG, QD
     Dates: start: 20040101

REACTIONS (3)
  - HEPATIC ENZYME INCREASED [None]
  - HEPATITIS TOXIC [None]
  - PLATELET COUNT DECREASED [None]
